FAERS Safety Report 14382722 (Version 1)
Quarter: 2020Q3

REPORT INFORMATION
  Report Type: Report from Study
  Country: IT (occurrence: IT)
  Receive Date: 20180112
  Receipt Date: 20180112
  Transmission Date: 20201104
  Serious: Yes (Hospitalization)
  Sender: FDA-Public Use
  Company Number: IT-ASTRAZENECA-2016SF33494

PATIENT
  Age: 22280 Day
  Sex: Female

DRUGS (34)
  1. MEDI4736 [Suspect]
     Active Substance: DURVALUMAB
     Indication: NON-SMALL CELL LUNG CANCER
     Dosage: 650.0MG ONCE/SINGLE ADMINISTRATION
     Route: 042
     Dates: start: 20170510, end: 20170510
  2. MEDI4736 [Suspect]
     Active Substance: DURVALUMAB
     Indication: NON-SMALL CELL LUNG CANCER
     Dosage: 1300.0MG ONCE/SINGLE ADMINISTRATION
     Route: 042
     Dates: start: 20160819, end: 20160819
  3. TREMELIMUMAB. [Suspect]
     Active Substance: TREMELIMUMAB
     Indication: NON-SMALL CELL LUNG CANCER
     Dosage: 65.0MG ONCE/SINGLE ADMINISTRATION
     Route: 042
     Dates: start: 20160719, end: 20160719
  4. JURNISTA [Concomitant]
     Active Substance: HYDROMORPHONE HYDROCHLORIDE
     Indication: PAIN
     Dosage: 20 MG QD
     Route: 048
     Dates: start: 20161110, end: 20161221
  5. MEDI4736 [Suspect]
     Active Substance: DURVALUMAB
     Indication: NON-SMALL CELL LUNG CANCER
     Dosage: 650.0MG ONCE/SINGLE ADMINISTRATION
     Route: 042
     Dates: start: 20170201, end: 20170201
  6. MEDI4736 [Suspect]
     Active Substance: DURVALUMAB
     Indication: NON-SMALL CELL LUNG CANCER
     Dosage: 650.0MG ONCE/SINGLE ADMINISTRATION
     Route: 042
     Dates: start: 20170426, end: 20170426
  7. MEDI4736 [Suspect]
     Active Substance: DURVALUMAB
     Indication: NON-SMALL CELL LUNG CANCER
     Dosage: 650.0MG ONCE/SINGLE ADMINISTRATION
     Route: 042
     Dates: start: 20170621, end: 20170621
  8. EFFENTORA [Concomitant]
     Active Substance: FENTANYL CITRATE
     Indication: PAIN
     Dosage: 200 UG PRN
     Route: 048
     Dates: start: 20160719
  9. MEDI4736 [Suspect]
     Active Substance: DURVALUMAB
     Indication: NON-SMALL CELL LUNG CANCER
     Dosage: 650.0NG ONCE/SINGLE ADMINISTRATION
     Route: 042
     Dates: start: 20161124, end: 20161124
  10. RANITIDINE. [Concomitant]
     Active Substance: RANITIDINE
     Indication: PROPHYLAXIS OF NAUSEA AND VOMITING
     Dosage: 50 MG ONCE
     Route: 042
     Dates: start: 20161207, end: 20161207
  11. MEDI4736 [Suspect]
     Active Substance: DURVALUMAB
     Indication: NON-SMALL CELL LUNG CANCER
     Dosage: 650.0MG ONCE/SINGLE ADMINISTRATION
     Route: 042
     Dates: start: 20161110, end: 20161110
  12. MEDI4736 [Suspect]
     Active Substance: DURVALUMAB
     Indication: NON-SMALL CELL LUNG CANCER
     Dosage: 650.0MG ONCE/SINGLE ADMINISTRATION
     Route: 042
     Dates: start: 20170301, end: 20170301
  13. MEDI4736 [Suspect]
     Active Substance: DURVALUMAB
     Indication: NON-SMALL CELL LUNG CANCER
     Dosage: 650.0MG ONCE/SINGLE ADMINISTRATION
     Route: 042
     Dates: start: 20170329, end: 20170329
  14. MEDI4736 [Suspect]
     Active Substance: DURVALUMAB
     Indication: NON-SMALL CELL LUNG CANCER
     Dosage: 650.0MG ONCE/SINGLE ADMINISTRATION
     Route: 042
     Dates: start: 20170523, end: 20170523
  15. MEDI4736 [Suspect]
     Active Substance: DURVALUMAB
     Indication: NON-SMALL CELL LUNG CANCER
     Dosage: 1300.0MG ONCE/SINGLE ADMINISTRATION
     Route: 042
     Dates: start: 20161013, end: 20161013
  16. TREMELIMUMAB. [Suspect]
     Active Substance: TREMELIMUMAB
     Indication: NON-SMALL CELL LUNG CANCER
     Dosage: 65.0MG ONCE/SINGLE ADMINISTRATION
     Route: 042
     Dates: start: 20160819, end: 20160819
  17. SERTRALINE [Concomitant]
     Active Substance: SERTRALINE HYDROCHLORIDE
     Indication: DEPRESSION
     Dosage: 50 MG QD
     Route: 048
     Dates: start: 20160503, end: 20161217
  18. MEDROL [Concomitant]
     Active Substance: METHYLPREDNISOLONE
     Indication: INFLAMMATION
     Dosage: 4 MG QD
     Route: 048
     Dates: start: 20160503, end: 20161213
  19. ONDANSETRON [Concomitant]
     Active Substance: ONDANSETRON
     Indication: PROPHYLAXIS OF NAUSEA AND VOMITING
     Dosage: 8 MG ONCE
     Route: 042
     Dates: start: 20161207, end: 20161207
  20. MEDI4736 [Suspect]
     Active Substance: DURVALUMAB
     Indication: NON-SMALL CELL LUNG CANCER
     Dosage: 650.0MG ONCE/SINGLE ADMINISTRATION
     Route: 042
     Dates: start: 20161207, end: 20161207
  21. JURNISTA [Concomitant]
     Active Substance: HYDROMORPHONE HYDROCHLORIDE
     Indication: PAIN
     Dosage: 16 MG QD
     Route: 048
     Dates: start: 20160616, end: 20161109
  22. MEDI4736 [Suspect]
     Active Substance: DURVALUMAB
     Indication: NON-SMALL CELL LUNG CANCER
     Dosage: 650.0MG ONCE/SINGLE ADMINISTRATION
     Route: 042
     Dates: start: 20170315, end: 20170315
  23. MEDI4736 [Suspect]
     Active Substance: DURVALUMAB
     Indication: NON-SMALL CELL LUNG CANCER
     Dosage: 650.0MG ONCE/SINGLE ADMINISTRATION
     Route: 042
     Dates: start: 20170412, end: 20170412
  24. SERTRALINE [Concomitant]
     Active Substance: SERTRALINE HYDROCHLORIDE
     Indication: DEPRESSION
     Dosage: 25 MG BID
     Route: 048
     Dates: start: 20161218, end: 20171009
  25. MEDI4736 [Suspect]
     Active Substance: DURVALUMAB
     Indication: NON-SMALL CELL LUNG CANCER
     Dosage: 650.0MG ONCE/SINGLE ADMINISTRATION
     Route: 042
     Dates: start: 20170215, end: 20170215
  26. MEDI4736 [Suspect]
     Active Substance: DURVALUMAB
     Indication: NON-SMALL CELL LUNG CANCER
     Dosage: 650.0MG ONCE/SINGLE ADMINISTRATION
     Route: 042
     Dates: start: 20170607, end: 20170607
  27. MEDI4736 [Suspect]
     Active Substance: DURVALUMAB
     Indication: NON-SMALL CELL LUNG CANCER
     Dosage: 650.0MG ONCE/SINGLE ADMINISTRATION
     Route: 042
     Dates: start: 20170705, end: 20170705
  28. MEDI4736 [Suspect]
     Active Substance: DURVALUMAB
     Indication: NON-SMALL CELL LUNG CANCER
     Dosage: 1300.0MG ONCE/SINGLE ADMINISTRATION
     Route: 042
     Dates: start: 20160916, end: 20160916
  29. TREMELIMUMAB. [Suspect]
     Active Substance: TREMELIMUMAB
     Indication: NON-SMALL CELL LUNG CANCER
     Dosage: 65.0MG ONCE/SINGLE ADMINISTRATION
     Route: 042
     Dates: start: 20161013, end: 20161013
  30. MEDI4736 [Suspect]
     Active Substance: DURVALUMAB
     Indication: NON-SMALL CELL LUNG CANCER
     Dosage: 650.0MG ONCE/SINGLE ADMINISTRATION
     Route: 042
     Dates: start: 20170119, end: 20170119
  31. MEDI4736 [Suspect]
     Active Substance: DURVALUMAB
     Indication: NON-SMALL CELL LUNG CANCER
     Dosage: 1300.0MG ONCE/SINGLE ADMINISTRATION
     Route: 042
     Dates: start: 20160719, end: 20160719
  32. TREMELIMUMAB. [Suspect]
     Active Substance: TREMELIMUMAB
     Indication: NON-SMALL CELL LUNG CANCER
     Dosage: 65.0MG ONCE/SINGLE ADMINISTRATION
     Route: 042
     Dates: start: 20160916, end: 20160916
  33. LANSOX [Concomitant]
     Active Substance: LANSOPRAZOLE
     Indication: PROPHYLAXIS
     Dosage: 15 MG DAILY
     Route: 048
     Dates: start: 20160503
  34. CLEXANE [Concomitant]
     Active Substance: ENOXAPARIN SODIUM
     Indication: THROMBOSIS PROPHYLAXIS
     Dosage: 4000 IU QD
     Route: 058
     Dates: start: 20160916

REACTIONS (1)
  - Chronic obstructive pulmonary disease [Recovered/Resolved]

NARRATIVE: CASE EVENT DATE: 20161213
